FAERS Safety Report 14535597 (Version 2)
Quarter: 2018Q2

REPORT INFORMATION
  Report Type: Spontaneous
  Country: CA (occurrence: CA)
  Receive Date: 20180215
  Receipt Date: 20180626
  Transmission Date: 20180711
  Serious: Yes (Other)
  Sender: FDA-Public Use
  Company Number: CA-BIOVITRUM-2018CA0133

PATIENT
  Age: 44 Year
  Sex: Male

DRUGS (6)
  1. KINERET [Suspect]
     Active Substance: ANAKINRA
     Indication: IMMUNOSUPPRESSANT DRUG THERAPY
  2. TACROLIMUS. [Suspect]
     Active Substance: TACROLIMUS
     Indication: IMMUNOSUPPRESSANT DRUG THERAPY
  3. SIROLIMUS. [Suspect]
     Active Substance: SIROLIMUS
     Indication: IMMUNOSUPPRESSION
  4. ETANERCEPT [Suspect]
     Active Substance: ETANERCEPT
     Indication: IMMUNOSUPPRESSION
  5. MYCOPHENOLATE MOFETIL. [Suspect]
     Active Substance: MYCOPHENOLATE MOFETIL
     Indication: IMMUNOSUPPRESSANT DRUG THERAPY
     Route: 041
  6. ALEMTUZUMAB [Suspect]
     Active Substance: ALEMTUZUMAB
     Indication: IMMUNOSUPPRESSANT DRUG THERAPY
     Route: 041

REACTIONS (13)
  - Diarrhoea haemorrhagic [Recovered/Resolved]
  - Gait disturbance [Recovered/Resolved]
  - Normocytic anaemia [Recovered/Resolved]
  - Nystagmus [Recovered/Resolved]
  - Abdominal pain [Recovered/Resolved]
  - Headache [Recovered/Resolved]
  - Post transplant lymphoproliferative disorder [Recovered/Resolved]
  - Weight decreased [Recovered/Resolved]
  - Diffuse large B-cell lymphoma [Recovered/Resolved]
  - Product use in unapproved indication [Recovered/Resolved]
  - Diplopia [Recovered/Resolved]
  - Off label use [Recovered/Resolved]
  - Vertigo [Recovered/Resolved]
